FAERS Safety Report 5693470-2 (Version None)
Quarter: 2008Q2

REPORT INFORMATION
  Report Type: 
  Country: None (occurrence: None)
  Receive Date: 20080402
  Receipt Date: 20080402
  Transmission Date: 20081010
  Serious: Yes (Life-Threatening, Hospitalization, Disabling, Other)
  Sender: FDA-Public Use
  Company Number: None

PATIENT
  Age: 44 Year
  Sex: Male
  Weight: 97.5234 kg

DRUGS (1)
  1. ELIDEL [Suspect]
     Indication: PSORIASIS
     Dosage: TUBE DAILY TOP
     Route: 061
     Dates: start: 20030101, end: 20080228

REACTIONS (1)
  - MYCOSIS FUNGOIDES [None]
